FAERS Safety Report 8772702 (Version 1)
Quarter: 2012Q4

REPORT INFORMATION
  Report Type: 
  Country: US (occurrence: US)
  Receive Date: 20120905
  Receipt Date: 20120905
  Transmission Date: 20130627
  Serious: Yes (Hospitalization, Other)
  Sender: FDA-Public Use
  Company Number: US-BAYER-2012-090913

PATIENT
  Age: 59 Year
  Sex: Male

DRUGS (1)
  1. BAYER ASPIRIN REGIMEN ADULT LOW STRENGTH [Suspect]
     Indication: ISCHAEMIC HEART DISEASE PROPHYLAXIS
     Dosage: 4 DF, ONCE
     Route: 048
     Dates: start: 2008

REACTIONS (2)
  - Cardiac arrest [Recovered/Resolved]
  - Heart injury [None]
